FAERS Safety Report 7584667-5 (Version None)
Quarter: 2011Q2

REPORT INFORMATION
  Report Type: 
  Country: None (occurrence: None)
  Receive Date: 20110630
  Receipt Date: 20110621
  Transmission Date: 20111010
  Serious: Yes (Hospitalization)
  Sender: FDA-Public Use
  Company Number: IT-ROCHE-784397

PATIENT
  Sex: Male

DRUGS (7)
  1. FLUPHENAZINE HCL [Suspect]
     Dosage: CYCLIC
     Route: 030
     Dates: start: 20100202, end: 20100202
  2. LORAZEPAM [Suspect]
     Dosage: DAILY
     Route: 030
     Dates: start: 20050205, end: 20100205
  3. CONTROL [Suspect]
     Dosage: DAILY
     Route: 030
     Dates: start: 20050205, end: 20100205
  4. VALIUM [Suspect]
     Dosage: DAILY
     Route: 048
     Dates: start: 20000205, end: 20100205
  5. AKINETON [Concomitant]
     Route: 048
  6. MICROSER [Concomitant]
     Route: 048
  7. ASPIRIN [Concomitant]

REACTIONS (2)
  - BRADYPHRENIA [None]
  - BRADYKINESIA [None]
